FAERS Safety Report 4508286-X (Version None)
Quarter: 2004Q4

REPORT INFORMATION
  Report Type: 
  Country: None (occurrence: None)
  Receive Date: 20041123
  Receipt Date: 20031217
  Transmission Date: 20050328
  Serious: No
  Sender: FDA-Public Use
  Company Number: US-GLAXOSMITHKLINE-A0443476A

PATIENT
  Age: 39 Year
  Sex: Female

DRUGS (3)
  1. WELLBUTRIN [Suspect]
     Dosage: 150MG TWICE PER DAY
     Route: 048
     Dates: start: 20031112
  2. ULTRAM [Concomitant]
  3. SUDAFED S.A. [Concomitant]

REACTIONS (1)
  - DYSPNOEA [None]
